FAERS Safety Report 8910654 (Version 1)
Quarter: 2012Q4

REPORT INFORMATION
  Report Type: Spontaneous
  Country: BA (occurrence: None)
  Receive Date: 20121108
  Receipt Date: 20121108
  Transmission Date: 20130627
  Serious: Yes (Hospitalization)
  Sender: FDA-Public Use
  Company Number: HALO20120008

PATIENT
  Age: 31 Year
  Sex: Male

DRUGS (3)
  1. HALOPERIDOL [Suspect]
     Indication: SCHIZOPHRENIA, PARANOID TYPE
     Dates: start: 2009
  2. CHLORPROMAZINE [Suspect]
     Indication: SCHIZOPHRENIA, PARANOID TYPE
     Dates: start: 2009
  3. OLANZAPINE (OLANZAPINE) [Suspect]
     Indication: SCHIZOPHRENIA, PARANOID TYPE
     Dates: start: 2009

REACTIONS (7)
  - Pulmonary embolism [None]
  - White blood cell count increased [None]
  - Activated partial thromboplastin time prolonged [None]
  - Blood prolactin increased [None]
  - Blood thyroid stimulating hormone increased [None]
  - Drug interaction [None]
  - C-reactive protein increased [None]
